FAERS Safety Report 11021229 (Version 1)
Quarter: 2015Q2

REPORT INFORMATION
  Report Type: Spontaneous
  Country: US (occurrence: US)
  Receive Date: 20150413
  Receipt Date: 20150413
  Transmission Date: 20150821
  Serious: Yes (Hospitalization)
  Sender: FDA-Public Use
  Company Number: US-BEH-2015050157

PATIENT
  Age: 11 Year
  Sex: Female
  Weight: 55 kg

DRUGS (27)
  1. DEXTROSE. [Concomitant]
     Active Substance: DEXTROSE
  2. LMX [Concomitant]
     Active Substance: LIDOCAINE
  3. NYSTATIN. [Concomitant]
     Active Substance: NYSTATIN
  4. VALIUM [Concomitant]
     Active Substance: DIAZEPAM
  5. DIPHENHYDRAMINE [Concomitant]
     Active Substance: DIPHENHYDRAMINE
  6. AMMONIUM LACTATE. [Concomitant]
     Active Substance: AMMONIUM LACTATE
  7. PRIVIGEN [Suspect]
     Active Substance: HUMAN IMMUNOGLOBULIN G
     Indication: DERMATOMYOSITIS
  8. METHOTREXATE [Concomitant]
     Active Substance: METHOTREXATE
  9. PREDNISONE. [Concomitant]
     Active Substance: PREDNISONE
  10. PRIVIGEN [Suspect]
     Active Substance: HUMAN IMMUNOGLOBULIN G
  11. NEXIUM [Concomitant]
     Active Substance: ESOMEPRAZOLE MAGNESIUM
  12. ACETAMINOPHEN. [Concomitant]
     Active Substance: ACETAMINOPHEN
  13. HEPARIN [Concomitant]
     Active Substance: HEPARIN SODIUM
  14. SOLU-MEDROL [Concomitant]
     Active Substance: METHYLPREDNISOLONE SODIUM SUCCINATE
  15. DIFLUCAN [Concomitant]
     Active Substance: FLUCONAZOLE
  16. PRAMOXINE [Concomitant]
     Active Substance: PRAMOXINE
  17. VANICREAM [Concomitant]
     Active Substance: TITANIUM DIOXIDE\ZINC OXIDE
  18. FOLIC ACID. [Concomitant]
     Active Substance: FOLIC ACID
  19. PREVACID [Concomitant]
     Active Substance: LANSOPRAZOLE
  20. HYDROXYZINE [Concomitant]
     Active Substance: HYDROXYZINE\HYDROXYZINE HYDROCHLORIDE
  21. REMICADE [Concomitant]
     Active Substance: INFLIXIMAB
  22. PLAQUENIL [Concomitant]
     Active Substance: HYDROXYCHLOROQUINE SULFATE
  23. PRIVIGEN [Suspect]
     Active Substance: HUMAN IMMUNOGLOBULIN G
     Route: 042
  24. SODIUM CHLORIDE. [Concomitant]
     Active Substance: SODIUM CHLORIDE
  25. EPIPEN [Concomitant]
     Active Substance: EPINEPHRINE
  26. ZOFRAN [Concomitant]
     Active Substance: ONDANSETRON HYDROCHLORIDE
  27. TRAMADOL [Concomitant]
     Active Substance: TRAMADOL

REACTIONS (3)
  - Pyrexia [Not Recovered/Not Resolved]
  - Peripheral swelling [Not Recovered/Not Resolved]
  - Device related infection [Not Recovered/Not Resolved]

NARRATIVE: CASE EVENT DATE: 201503
